FAERS Safety Report 5453513-8 (Version None)
Quarter: 2007Q3

REPORT INFORMATION
  Report Type: 
  Country: None (occurrence: None)
  Receive Date: 20070913
  Receipt Date: 20070827
  Transmission Date: 20080115
  Serious: No
  Sender: FDA-Public Use
  Company Number: APP200700259

PATIENT
  Age: 12 Year
  Sex: Male

DRUGS (3)
  1. ETOPOSIDE [Suspect]
     Indication: LEIOMYOSARCOMA
  2. IFOSFAMIDE [Suspect]
     Indication: LEIOMYOSARCOMA
  3. 2-MERCAPTOETHANE SULPHONATE SODIUM [Concomitant]

REACTIONS (2)
  - NEUROBLASTOMA [None]
  - RENAL CELL CARCINOMA STAGE UNSPECIFIED [None]
